FAERS Safety Report 8621386-8 (Version None)
Quarter: 2012Q3

REPORT INFORMATION
  Report Type: 
  Country: None (occurrence: None)
  Receive Date: 20120824
  Receipt Date: 20070603
  Transmission Date: 20120928
  Serious: Yes (Other)
  Sender: FDA-Public Use
  Company Number: CO-PFIZER INC-2012204461

PATIENT
  Age: 74 Year
  Sex: Female

DRUGS (7)
  1. QUINAPRIL AND HYDROCHLOROTHIAZIDE [Suspect]
     Indication: HYPERTENSION
     Dosage: 20/12.5 MG, 1X/DAY
  2. ACETYLSALICYLIC ACID [Concomitant]
     Dosage: 100 MG, 1X/DAY
  3. GLIBENCLAMIDE [Concomitant]
     Dosage: 5 MG, 2X/DAY
  4. METOPROLOL TARTRATE [Concomitant]
     Dosage: 50 MG, 2X/DAY
  5. NIFEDIPINE [Concomitant]
     Dosage: 30 MG, 2X/DAY
  6. LIPITOR [Suspect]
     Indication: DYSLIPIDAEMIA
     Dosage: 10 MG, 1X/DAY
  7. OLMESARTAN MEDOXOMIL AND HYDROCHLOROTHIZIDE [Suspect]
     Indication: HYPERTENSION
     Dosage: 20/12.5 MG, 1X/DAY

REACTIONS (4)
  - CREATININE RENAL CLEARANCE ABNORMAL [None]
  - BLOOD CREATININE ABNORMAL [None]
  - DRUG INEFFECTIVE [None]
  - HEADACHE [None]
